FAERS Safety Report 4978397-3 (Version None)
Quarter: 2006Q1

REPORT INFORMATION
  Report Type: 
  Country: None (occurrence: None)
  Receive Date: 20060228
  Receipt Date: 20051130
  Transmission Date: 20060701
  Serious: Yes (Other)
  Sender: FDA-Public Use
  Company Number: 2005152919

PATIENT
  Age: 84 Year
  Sex: Female

DRUGS (2)
  1. PROCARDIA [Suspect]
     Indication: HYPERTENSION
  2. PRINIVIL [Suspect]
     Indication: HYPERTENSION

REACTIONS (1)
  - DRUG INEFFECTIVE [None]
